FAERS Safety Report 6945221-9 (Version None)
Quarter: 2010Q3

REPORT INFORMATION
  Report Type: 
  Country: None (occurrence: None)
  Receive Date: 20100827
  Receipt Date: 20100610
  Transmission Date: 20110219
  Serious: No
  Sender: FDA-Public Use
  Company Number: US-KINGPHARMUSA00001-K201000720

PATIENT
  Sex: Male
  Weight: 104.31 kg

DRUGS (9)
  1. FLECTOR [Suspect]
     Indication: BACK PAIN
     Dosage: UNK, Q12HRS
     Route: 061
     Dates: start: 20100301, end: 20100101
  2. FLECTOR [Suspect]
     Indication: MUSCULOSKELETAL PAIN
  3. FLECTOR [Suspect]
     Indication: ARTHRALGIA
  4. SKELAXIN [Suspect]
     Indication: BACK PAIN
     Dosage: 800 MG, QID
     Route: 048
     Dates: start: 20100301, end: 20100101
  5. SKELAXIN [Suspect]
     Indication: MUSCULOSKELETAL PAIN
  6. SKELAXIN [Suspect]
     Indication: ARTHRALGIA
  7. MORPHINE [Suspect]
     Indication: BACK PAIN
     Dosage: UNK, PRN
     Route: 048
     Dates: start: 20100301, end: 20100101
  8. MORPHINE [Suspect]
     Indication: MUSCULOSKELETAL PAIN
  9. MORPHINE [Suspect]
     Indication: ARTHRALGIA

REACTIONS (8)
  - ABDOMINAL DISCOMFORT [None]
  - ACCIDENT [None]
  - APPLICATION SITE RASH [None]
  - DRUG DIVERSION [None]
  - IRRITABILITY [None]
  - LETHARGY [None]
  - MALAISE [None]
  - NAUSEA [None]
